FAERS Safety Report 5563508-1 (Version None)
Quarter: 2007Q4

REPORT INFORMATION
  Report Type: 
  Country: None (occurrence: None)
  Receive Date: 20071217
  Receipt Date: 20070608
  Transmission Date: 20080405
  Serious: No
  Sender: FDA-Public Use
  Company Number: US-ASTRAZENECA-2007UW13835

PATIENT
  Age: 75 Year
  Sex: Female

DRUGS (8)
  1. CRESTOR [Suspect]
     Route: 048
     Dates: start: 20060901, end: 20070301
  2. CRESTOR [Suspect]
     Route: 048
     Dates: start: 20070301
  3. TOPROL-XL [Concomitant]
     Route: 048
  4. ISOSORBIDE DINITRATE [Concomitant]
  5. AMIODARONE HCL [Concomitant]
  6. KETOPROFEN [Concomitant]
  7. PLAVIX [Concomitant]
  8. BENICAR HCT [Concomitant]

REACTIONS (2)
  - JOINT SWELLING [None]
  - OEDEMA PERIPHERAL [None]
